FAERS Safety Report 8192331-7 (Version None)
Quarter: 2012Q1

REPORT INFORMATION
  Report Type: 
  Country: None (occurrence: None)
  Receive Date: 20120307
  Receipt Date: 20120227
  Transmission Date: 20120608
  Serious: Yes (Other)
  Sender: FDA-Public Use
  Company Number: US-ASTRAZENECA-2011SE25471

PATIENT
  Age: 49 Year
  Sex: Female
  Weight: 72.6 kg

DRUGS (14)
  1. ACCURETIC [Suspect]
     Indication: HYPERTENSION
     Dosage: 20 MG/12.5 MG TWO TIMES A DAY
     Route: 048
  2. NARDIL [Suspect]
     Indication: DEPRESSION
     Route: 048
  3. NEXIUM [Suspect]
     Indication: HYPERCHLORHYDRIA
     Route: 048
     Dates: start: 20000101
  4. PREPARATION-H [Suspect]
  5. FISH OIL OTC [Concomitant]
     Indication: CARDIAC DISORDER
     Dosage: THREE TIMES A DAY
     Route: 048
  6. XANAX [Concomitant]
     Indication: POST-TRAUMATIC STRESS DISORDER
     Route: 048
  7. VENTOLIN DS [Concomitant]
     Indication: ASTHMA
     Route: 055
  8. NEXIUM [Suspect]
     Indication: GASTROOESOPHAGEAL REFLUX DISEASE
     Route: 048
     Dates: start: 20000101
  9. XANAX [Concomitant]
     Indication: GENERALISED ANXIETY DISORDER
     Route: 048
  10. ASPIRIN [Concomitant]
  11. ESGIC-PLUS [Concomitant]
     Indication: HEADACHE
     Dosage: AS REQUIRED
     Route: 048
  12. CITRUCEL [Concomitant]
  13. MAGNESIUM [Concomitant]
     Route: 048
  14. VITAMIN D [Concomitant]
     Dosage: 5000 UNITS ONCE A WEEK
     Route: 048

REACTIONS (23)
  - HAEMORRHAGE [None]
  - APHAGIA [None]
  - EATING DISORDER [None]
  - RECTAL HAEMORRHAGE [None]
  - ANAL SPHINCTER ATONY [None]
  - DRUG DOSE OMISSION [None]
  - GASTROOESOPHAGEAL REFLUX DISEASE [None]
  - BLOOD MAGNESIUM [None]
  - ABDOMINAL PAIN [None]
  - VOMITING [None]
  - BURNING SENSATION [None]
  - HAEMORRHOIDS [None]
  - CATARACT [None]
  - DYSPEPSIA [None]
  - BLOOD PRESSURE INCREASED [None]
  - NAUSEA [None]
  - HYPERTENSIVE CRISIS [None]
  - DIZZINESS POSTURAL [None]
  - CONSTIPATION [None]
  - ULCER HAEMORRHAGE [None]
  - PAIN [None]
  - FEELING ABNORMAL [None]
  - HYPERSENSITIVITY [None]
